FAERS Safety Report 10161146 (Version 1)
Quarter: 2014Q2

REPORT INFORMATION
  Report Type: Spontaneous
  Country: US (occurrence: US)
  Receive Date: 20140508
  Receipt Date: 20140508
  Transmission Date: 20141212
  Serious: No
  Sender: FDA-Public Use
  Company Number: US-PFIZER INC-2014125541

PATIENT
  Age: 83 Year
  Sex: Female
  Weight: 62.13 kg

DRUGS (4)
  1. ZOLOFT [Suspect]
     Indication: DEPRESSION
     Dosage: 25 MG, 1X/DAY
     Route: 048
     Dates: start: 20140504
  2. LORAZEPAM [Concomitant]
     Indication: ANXIETY
     Dosage: UNK, 3X/DAY
  3. ASPIRIN [Concomitant]
     Indication: PAIN
     Dosage: UNK
  4. ALKA-SELTZER PLUS NIGHT-TIME [Concomitant]
     Indication: PAIN
     Dosage: UNK

REACTIONS (1)
  - Abdominal pain upper [Recovered/Resolved]
